FAERS Safety Report 13604338 (Version 1)
Quarter: 2017Q2

REPORT INFORMATION
  Report Type: Spontaneous
  Country: US (occurrence: US)
  Receive Date: 20170601
  Receipt Date: 20170601
  Transmission Date: 20170830
  Serious: Yes (Other)
  Sender: FDA-Public Use
  Company Number: None

PATIENT
  Age: 35 Year
  Sex: Female
  Weight: 81 kg

DRUGS (4)
  1. JUNEL FE 1/20 [Concomitant]
     Active Substance: ETHINYL ESTRADIOL\NORETHINDRONE ACETATE
  2. IBUPROFEN. [Concomitant]
     Active Substance: IBUPROFEN
  3. NOVOLOG [Concomitant]
     Active Substance: INSULIN ASPART
  4. BANANA BOAT SPORT SPF 50 [Suspect]
     Active Substance: AVOBENZONE\OCTOCRYLENE\OXYBENZONE
     Indication: PROPHYLAXIS AGAINST SOLAR RADIATION
     Dosage: ?          OTHER STRENGTH:SPF;QUANTITY:1 SPRAY(S);OTHER FREQUENCY:EVERY 2 HRS;?
     Route: 061
     Dates: start: 20170527, end: 20170527

REACTIONS (2)
  - Burns second degree [None]
  - Peripheral swelling [None]

NARRATIVE: CASE EVENT DATE: 20170527
